FAERS Safety Report 11684722 (Version 1)
Quarter: 2015Q4

REPORT INFORMATION
  Report Type: Spontaneous
  Country: KE (occurrence: KE)
  Receive Date: 20151029
  Receipt Date: 20151029
  Transmission Date: 20160304
  Serious: Yes (Other)
  Sender: FDA-Public Use
  Company Number: KE-GLAXOSMITHKLINE-KE2015GSK154043

PATIENT
  Age: 34 Year
  Sex: Male

DRUGS (2)
  1. VENTOLIN [Suspect]
     Active Substance: ALBUTEROL SULFATE
     Indication: ASTHMA
     Dosage: BID
     Route: 055
     Dates: start: 201505
  2. VENTOLIN [Suspect]
     Active Substance: ALBUTEROL SULFATE
     Dosage: PRN
     Dates: start: 201505

REACTIONS (4)
  - Tonsillar disorder [Recovered/Resolved]
  - Tonsillar inflammation [Recovered/Resolved]
  - Tonsillitis bacterial [Recovered/Resolved]
  - Oropharyngeal pain [Recovered/Resolved]

NARRATIVE: CASE EVENT DATE: 201505
